FAERS Safety Report 11025494 (Version 1)
Quarter: 2015Q2

REPORT INFORMATION
  Report Type: Spontaneous
  Country: BR (occurrence: None)
  Receive Date: 20150410
  Receipt Date: 20150410
  Transmission Date: 20150821
  Serious: Yes (Other)
  Sender: FDA-Public Use
  Company Number: 8019012

PATIENT
  Age: 21 Year
  Sex: Female
  Weight: 70 kg

DRUGS (8)
  1. LIPLESS (CIPROFIBRATE) [Concomitant]
  2. RISPERIDONE (RISPERIDONE) [Suspect]
     Active Substance: RISPERIDONE
     Indication: PRODUCT USED FOR UNKNOWN INDICATION
     Dosage: 1 MG?
  3. AD TIL (AUXERGYL D3) (COLECALCIFEROL, RETINOL ACETATE) [Concomitant]
  4. PARACETAMOL [Concomitant]
     Active Substance: ACETAMINOPHEN
  5. LEVOTHYROXINE (LEVOTHYROXINE) (LEVOTHYROXINE SODIUM) [Suspect]
     Active Substance: LEVOTHYROXINE
     Indication: PRODUCT USED FOR UNKNOWN INDICATION
     Dosage: 125 MCG??
  6. ATORVASTATIN [Concomitant]
     Active Substance: ATORVASTATIN
  7. CALCIUM CARBONATE. [Concomitant]
     Active Substance: CALCIUM CARBONATE
  8. SERTRALINE [Suspect]
     Active Substance: SERTRALINE HYDROCHLORIDE
     Indication: PRODUCT USED FOR UNKNOWN INDICATION

REACTIONS (5)
  - Aortic valve disease [None]
  - Endocarditis [None]
  - Asthenia [None]
  - Dizziness [None]
  - Pain in extremity [None]

NARRATIVE: CASE EVENT DATE: 20020214
